FAERS Safety Report 4831021-2 (Version None)
Quarter: 2005Q4

REPORT INFORMATION
  Report Type: 
  Country: None (occurrence: None)
  Receive Date: 20051114
  Receipt Date: 20050124
  Transmission Date: 20060501
  Serious: Yes (Hospitalization)
  Sender: FDA-Public Use
  Company Number: 800265

PATIENT
  Age: 51 Year
  Sex: Female
  Weight: 53.1 kg

DRUGS (19)
  1. EXTRANEAL [Suspect]
     Indication: RENAL FAILURE CHRONIC
     Dosage: 2000 ML; EVERY DAY; IP
     Route: 033
     Dates: start: 20031014
  2. DIANEAL [Concomitant]
  3. MICARDIS [Concomitant]
  4. RENAGEL [Concomitant]
  5. ALFAROL [Concomitant]
  6. AMLODIPINE BESYLATE [Concomitant]
  7. TEGRETOL [Concomitant]
  8. AMOBAN [Concomitant]
  9. LORCAM [Concomitant]
  10. VOLTAREN [Concomitant]
  11. LEPETAN [Concomitant]
  12. EPO SUBCUTANEOUS INJECTION [Concomitant]
  13. RIZE [Concomitant]
  14. NEUROTROPIN [Concomitant]
  15. CYANOCOBALAMIN [Concomitant]
  16. OXAROL [Concomitant]
  17. BLUTAL [Concomitant]
  18. ALOSENN [Concomitant]
  19. ACETAMINOPHEN [Concomitant]

REACTIONS (6)
  - ANAEMIA [None]
  - ANGINA PECTORIS [None]
  - BLOOD ALKALINE PHOSPHATASE INCREASED [None]
  - CARDIAC FAILURE CONGESTIVE [None]
  - CONDITION AGGRAVATED [None]
  - OSTEOSIS [None]
